FAERS Safety Report 8088024-7 (Version None)
Quarter: 2012Q1

REPORT INFORMATION
  Report Type: 
  Country: None (occurrence: None)
  Receive Date: 20120128
  Receipt Date: 20110527
  Transmission Date: 20120608
  Serious: No
  Sender: FDA-Public Use
  Company Number: US-ABBOTT-11P-163-0728878-00

PATIENT
  Sex: Female
  Weight: 55.842 kg

DRUGS (11)
  1. PREDNISONE TAB [Concomitant]
     Indication: RHEUMATOID ARTHRITIS
  2. ZYRTEC [Concomitant]
     Indication: HYPERSENSITIVITY
  3. ZOLOFT [Concomitant]
     Indication: DEPRESSION
  4. ZOCOR [Concomitant]
     Indication: BLOOD CHOLESTEROL INCREASED
  5. ACTONEL [Concomitant]
     Indication: BONE DISORDER
  6. CALCIUM [Concomitant]
     Indication: BONE DISORDER
  7. HUMIRA [Suspect]
     Indication: RHEUMATOID ARTHRITIS
     Dates: start: 20070101
  8. NEXIUM [Concomitant]
     Indication: GASTROOESOPHAGEAL REFLUX DISEASE
  9. NASONEX [Concomitant]
     Indication: HYPERSENSITIVITY
  10. FOLIC ACID [Concomitant]
     Indication: SUPPLEMENTATION THERAPY
  11. ASPIRIN [Concomitant]
     Indication: CARDIAC DISORDER

REACTIONS (2)
  - SINUSITIS [None]
  - UPPER-AIRWAY COUGH SYNDROME [None]
